FAERS Safety Report 19573417 (Version 1)
Quarter: 2021Q3

REPORT INFORMATION
  Report Type: Spontaneous
  Country: US (occurrence: US)
  Receive Date: 20210717
  Receipt Date: 20210717
  Transmission Date: 20211014
  Serious: Yes (Hospitalization)
  Sender: FDA-Public Use
  Company Number: US-DRREDDYS-LIT/USA/21/0137793

PATIENT
  Age: 57 Year
  Sex: Male

DRUGS (4)
  1. FLUDARABINE [Suspect]
     Active Substance: FLUDARABINE PHOSPHATE
     Indication: CHEMOTHERAPY
     Dosage: FIRST DOSE
  2. CYCLOPHOSPHAMIDE. [Suspect]
     Active Substance: CYCLOPHOSPHAMIDE
     Indication: CHEMOTHERAPY
     Dosage: FIRST DOSE
  3. MELPHALAN HYDROCHLORIDE FOR INJECTION [Suspect]
     Active Substance: MELPHALAN HYDROCHLORIDE
     Indication: PLASMA CELL MYELOMA
     Dates: start: 202002
  4. BORTEZOMIB. [Suspect]
     Active Substance: BORTEZOMIB
     Indication: PLASMA CELL MYELOMA
     Dates: start: 202002

REACTIONS (2)
  - Lymphopenia [Not Recovered/Not Resolved]
  - COVID-19 [Recovered/Resolved]
